FAERS Safety Report 19748258 (Version 1)
Quarter: 2021Q3

REPORT INFORMATION
  Report Type: Spontaneous
  Country: JP (occurrence: JP)
  Receive Date: 20210826
  Receipt Date: 20210826
  Transmission Date: 20211014
  Serious: Yes (Hospitalization)
  Sender: FDA-Public Use
  Company Number: JP-TEVA-2021-JP-003938J

PATIENT
  Age: 31 Year
  Sex: Female

DRUGS (1)
  1. IBUPROFEN TABLET 200MG ^TAIYO^ [Suspect]
     Active Substance: IBUPROFEN
     Indication: PRODUCT USED FOR UNKNOWN INDICATION
     Route: 065
     Dates: start: 201906, end: 201906

REACTIONS (1)
  - Drug eruption [Unknown]
